FAERS Safety Report 7754752-3 (Version None)
Quarter: 2011Q3

REPORT INFORMATION
  Report Type: 
  Country: None (occurrence: None)
  Receive Date: 20110916
  Receipt Date: 20110914
  Transmission Date: 20111222
  Serious: Yes (Other)
  Sender: FDA-Public Use
  Company Number: US-BRISTOL-MYERS SQUIBB COMPANY-16058851

PATIENT
  Age: 80 Year
  Sex: Female

DRUGS (1)
  1. ABILIFY [Suspect]
     Dosage: 1 DF: 2-5MG,FOR ABOUT A WEEK

REACTIONS (3)
  - DEMENTIA [None]
  - DYSKINESIA [None]
  - MOVEMENT DISORDER [None]
